FAERS Safety Report 6057636-4 (Version None)
Quarter: 2009Q1

REPORT INFORMATION
  Report Type: 
  Country: None (occurrence: None)
  Receive Date: 20090129
  Receipt Date: 20090119
  Transmission Date: 20090719
  Serious: Yes (Hospitalization, Other)
  Sender: FDA-Public Use
  Company Number: US-BAXTER-2009BH001028

PATIENT
  Age: 54 Year
  Sex: Female
  Weight: 73 kg

DRUGS (12)
  1. CYCLOPHOSPHAMIDE [Suspect]
     Indication: BREAST CANCER
     Route: 042
     Dates: start: 20080908, end: 20080908
  2. CYCLOPHOSPHAMIDE [Suspect]
     Route: 042
     Dates: start: 20080728, end: 20080728
  3. CYCLOPHOSPHAMIDE [Suspect]
     Route: 042
     Dates: start: 20080818, end: 20080818
  4. CYCLOPHOSPHAMIDE [Suspect]
     Route: 042
     Dates: start: 20080929, end: 20080929
  5. TAXOTERE [Suspect]
     Indication: BREAST CANCER
     Route: 042
     Dates: start: 20080818, end: 20080818
  6. TAXOTERE [Suspect]
     Route: 042
     Dates: start: 20080908, end: 20080908
  7. TAXOTERE [Suspect]
     Route: 042
     Dates: start: 20080929, end: 20080929
  8. TAXOTERE [Suspect]
     Route: 042
     Dates: start: 20080728, end: 20080728
  9. DOXORUBICIN HCL [Suspect]
     Indication: BREAST CANCER
     Route: 042
     Dates: start: 20080728, end: 20080728
  10. DOXORUBICIN HCL [Suspect]
     Route: 042
     Dates: start: 20080818, end: 20080818
  11. DOXORUBICIN HCL [Suspect]
     Route: 042
     Dates: start: 20080908, end: 20080908
  12. DOXORUBICIN HCL [Suspect]
     Route: 042
     Dates: start: 20080929, end: 20080929

REACTIONS (6)
  - BRONCHOSPASM [None]
  - CRYING [None]
  - EMOTIONAL DISORDER [None]
  - LOSS OF CONSCIOUSNESS [None]
  - NASOPHARYNGITIS [None]
  - PNEUMONITIS CHEMICAL [None]
